FAERS Safety Report 8591607-9 (Version None)
Quarter: 2012Q3

REPORT INFORMATION
  Report Type: 
  Country: None (occurrence: None)
  Receive Date: 20120814
  Receipt Date: 20120809
  Transmission Date: 20120928
  Serious: Yes (Hospitalization, Other)
  Sender: FDA-Public Use
  Company Number: US-PFIZER INC-2012081486

PATIENT
  Age: 67 Year
  Sex: Female
  Weight: 104 kg

DRUGS (1)
  1. PROCARDIA [Suspect]
     Dosage: UNK
     Route: 048
     Dates: start: 20110428

REACTIONS (1)
  - MYOCARDIAL INFARCTION [None]
